FAERS Safety Report 14233203 (Version 4)
Quarter: 2018Q1

REPORT INFORMATION
  Report Type: Report from Study
  Country: US (occurrence: US)
  Receive Date: 20171128
  Receipt Date: 20180327
  Transmission Date: 20180508
  Serious: Yes (Hospitalization)
  Sender: FDA-Public Use
  Company Number: US-ACTELION-A-NJ2017-163157

PATIENT
  Age: 49 Year
  Sex: Male
  Weight: 138.78 kg

DRUGS (4)
  1. OPSUMIT [Suspect]
     Active Substance: MACITENTAN
     Indication: PULMONARY ARTERIAL HYPERTENSION
     Dosage: 10 MG, QD
     Route: 048
  2. WARFARIN [Concomitant]
     Active Substance: WARFARIN
  3. OXYGEN. [Concomitant]
     Active Substance: OXYGEN
  4. SILDENAFIL CITRATE. [Concomitant]
     Active Substance: SILDENAFIL CITRATE

REACTIONS (14)
  - Syncope [Recovered/Resolved]
  - Pulmonary arterial hypertension [Unknown]
  - Epistaxis [Unknown]
  - Unevaluable event [Unknown]
  - Loss of consciousness [Unknown]
  - Drug dose omission [Unknown]
  - Dyspnoea [Unknown]
  - Headache [Unknown]
  - Blood glucose increased [Unknown]
  - Fall [Unknown]
  - Laceration [Unknown]
  - Condition aggravated [Unknown]
  - Hypoxia [Recovered/Resolved]
  - Chest discomfort [Unknown]

NARRATIVE: CASE EVENT DATE: 201708
